FAERS Safety Report 12147268 (Version 2)
Quarter: 2016Q2

REPORT INFORMATION
  Report Type: Spontaneous
  Country: US (occurrence: US)
  Receive Date: 20160304
  Receipt Date: 20160407
  Transmission Date: 20160815
  Serious: Yes (Other)
  Sender: FDA-Public Use
  Company Number: US-BAYER-2016-037410

PATIENT
  Age: 20 Year
  Sex: Female

DRUGS (1)
  1. YAZ [Suspect]
     Active Substance: DROSPIRENONE\ETHINYL ESTRADIOL
     Indication: DYSMENORRHOEA
     Dosage: UNK
     Route: 048
     Dates: start: 201407, end: 201602

REACTIONS (17)
  - Neck pain [Recovered/Resolved]
  - Vision blurred [Recovered/Resolved]
  - Muscle tightness [Recovered/Resolved]
  - Paraesthesia [Recovered/Resolved]
  - Back pain [Recovered/Resolved]
  - Anxiety [Recovered/Resolved]
  - Pyrexia [Recovering/Resolving]
  - Insomnia [Recovered/Resolved]
  - Product use issue [None]
  - Chills [Recovered/Resolved]
  - Systolic hypertension [Recovered/Resolved]
  - Feeling abnormal [Recovered/Resolved]
  - Poor peripheral circulation [Recovered/Resolved]
  - Heart rate increased [Recovered/Resolved]
  - Migraine [Recovered/Resolved]
  - Pain [Recovered/Resolved]
  - Spinal pain [Recovered/Resolved]

NARRATIVE: CASE EVENT DATE: 2015
